FAERS Safety Report 23947927 (Version 1)
Quarter: 2024Q2

REPORT INFORMATION
  Report Type: Report from Study
  Country: US (occurrence: US)
  Receive Date: 20240606
  Receipt Date: 20240606
  Transmission Date: 20240716
  Serious: Yes (Hospitalization, Other)
  Sender: FDA-Public Use
  Company Number: US-ABBVIE-5789213

PATIENT
  Age: 77 Year
  Sex: Male

DRUGS (13)
  1. SKYRIZI [Suspect]
     Active Substance: RISANKIZUMAB-RZAA
     Indication: Pulmonary embolism
     Dosage: WEEK 0
     Route: 058
     Dates: start: 20240515, end: 20240515
  2. SKYRIZI [Suspect]
     Active Substance: RISANKIZUMAB-RZAA
     Indication: Vestibular disorder
  3. SKYRIZI [Suspect]
     Active Substance: RISANKIZUMAB-RZAA
     Indication: Dehydration
  4. SKYRIZI [Suspect]
     Active Substance: RISANKIZUMAB-RZAA
     Indication: Nausea
  5. SKYRIZI [Suspect]
     Active Substance: RISANKIZUMAB-RZAA
     Indication: Lip and/or oral cavity cancer
  6. SKYRIZI [Suspect]
     Active Substance: RISANKIZUMAB-RZAA
     Indication: Essential hypertension
  7. SKYRIZI [Suspect]
     Active Substance: RISANKIZUMAB-RZAA
     Indication: Deficiency anaemia
  8. SKYRIZI [Suspect]
     Active Substance: RISANKIZUMAB-RZAA
     Indication: Visual field defect
  9. SKYRIZI [Suspect]
     Active Substance: RISANKIZUMAB-RZAA
     Indication: Vomiting
  10. CARVEDILOL [Concomitant]
     Active Substance: CARVEDILOL
     Indication: Product used for unknown indication
     Dosage: 3.125 MG TABLET
  11. MECLIZINE HYDROCHLORIDE [Concomitant]
     Active Substance: MECLIZINE HYDROCHLORIDE
     Indication: Product used for unknown indication
     Dosage: 25 MG TAB CHEW
  12. AMIODARONE HYDROCHLORIDE [Concomitant]
     Active Substance: AMIODARONE HYDROCHLORIDE
     Indication: Product used for unknown indication
     Dosage: 200 MG TABLET
  13. AMLODIPINE BESYLATE [Concomitant]
     Active Substance: AMLODIPINE BESYLATE
     Indication: Product used for unknown indication
     Dosage: 10 MG TABLET

REACTIONS (5)
  - Myocardial infarction [Unknown]
  - Pruritus [Unknown]
  - Condition aggravated [Unknown]
  - Drug ineffective [Unknown]
  - Psoriatic arthropathy [Unknown]

NARRATIVE: CASE EVENT DATE: 20240501
